FAERS Safety Report 9031727 (Version 2)
Quarter: 2013Q1

REPORT INFORMATION
  Report Type: Spontaneous
  Country: DE (occurrence: DE)
  Receive Date: 20130124
  Receipt Date: 20130307
  Transmission Date: 20140127
  Serious: Yes (Hospitalization)
  Sender: FDA-Public Use
  Company Number: DE-ELI_LILLY_AND_COMPANY-DE201301005477

PATIENT
  Age: 59 Year
  Sex: Male

DRUGS (6)
  1. BYDUREON [Suspect]
     Indication: TYPE 2 DIABETES MELLITUS
     Dosage: 2 MG, UNKNOWN
     Route: 058
     Dates: start: 20120723, end: 20121121
  2. CARVEDILOL [Concomitant]
     Dosage: 25 MG, BID
  3. EBRANTIL [Concomitant]
     Dosage: 60 MG, BID
  4. CARMEN [Concomitant]
     Dosage: 10 MG, UNKNOWN
  5. VEROSPIRON [Concomitant]
     Dosage: 50 MG, UNKNOWN
  6. TORASEMID [Concomitant]
     Dosage: UNK, UNKNOWN

REACTIONS (3)
  - Renal failure [Unknown]
  - Asthenia [Unknown]
  - Oedema [Unknown]
